FAERS Safety Report 16846230 (Version 2)
Quarter: 2020Q2

REPORT INFORMATION
  Report Type: Report from Study
  Country: US (occurrence: US)
  Receive Date: 20190924
  Receipt Date: 20200625
  Transmission Date: 20200713
  Serious: No
  Sender: FDA-Public Use
  Company Number: US-SA-2019SA262461

PATIENT

DRUGS (2)
  1. DUPILUMAB [Suspect]
     Active Substance: DUPILUMAB
     Dosage: 300 MG, QOW
     Route: 058
     Dates: start: 20190815, end: 20190824
  2. DUPILUMAB [Suspect]
     Active Substance: DUPILUMAB
     Indication: ASTHMA
     Dosage: 600 MG, 1X
     Route: 058

REACTIONS (3)
  - Product use issue [Unknown]
  - Hypersensitivity [Unknown]
  - Injection site urticaria [Recovered/Resolved]

NARRATIVE: CASE EVENT DATE: 20190824
